FAERS Safety Report 9743465 (Version 2)
Quarter: 2013Q4

REPORT INFORMATION
  Report Type: Spontaneous
  Country: HU (occurrence: HU)
  Receive Date: 20131210
  Receipt Date: 20131223
  Transmission Date: 20140711
  Serious: Yes (Death)
  Sender: FDA-Public Use
  Company Number: HU-BAYER-2013-147013

PATIENT
  Age: 65 Year
  Sex: Male

DRUGS (6)
  1. AVELOX [Suspect]
     Indication: SOFT TISSUE INFECTION
     Dosage: UNK
     Route: 042
     Dates: start: 2011, end: 2011
  2. MEFORAL [Concomitant]
  3. LEVONOR [Concomitant]
  4. CURAM [Concomitant]
  5. FRAXIPARINE [Concomitant]
  6. INSULIN [Concomitant]

REACTIONS (2)
  - Left ventricular failure [Fatal]
  - Pulmonary oedema [Fatal]
